FAERS Safety Report 16966588 (Version 4)
Quarter: 2021Q3

REPORT INFORMATION
  Report Type: Report from Study
  Country: CA (occurrence: CA)
  Receive Date: 20191028
  Receipt Date: 20210701
  Transmission Date: 20211014
  Serious: Yes (Other)
  Sender: FDA-Public Use
  Company Number: CA-JNJFOC-20191026726

PATIENT
  Age: 48 Year
  Sex: Female
  Weight: 79.38 kg

DRUGS (1)
  1. TREMFYA [Suspect]
     Active Substance: GUSELKUMAB
     Indication: PSORIASIS
     Route: 058
     Dates: start: 20190528, end: 20201110

REACTIONS (4)
  - Product use issue [Unknown]
  - Psoriasis [Unknown]
  - Off label use [Unknown]
  - Tooth abscess [Unknown]

NARRATIVE: CASE EVENT DATE: 20191010
